FAERS Safety Report 20135974 (Version 1)
Quarter: 2021Q4

REPORT INFORMATION
  Report Type: Spontaneous
  Country: US (occurrence: None)
  Receive Date: 20211201
  Receipt Date: 20211201
  Transmission Date: 20220303
  Serious: No
  Sender: FDA-Public Use
  Company Number: None

PATIENT
  Age: 29 Year
  Sex: Male
  Weight: 118.39 kg

DRUGS (2)
  1. CASIRIVIMAB [Suspect]
     Active Substance: CASIRIVIMAB
     Indication: Product used for unknown indication
     Dosage: FREQUENCY : ONCE;?
     Route: 042
     Dates: start: 20210806, end: 20210806
  2. IMDEVIMAB [Suspect]
     Active Substance: IMDEVIMAB
     Indication: Product used for unknown indication
     Dosage: FREQUENCY : ONCE;?
     Route: 042
     Dates: start: 20210806, end: 20210806

REACTIONS (4)
  - Urticaria [None]
  - Pruritus [None]
  - Flushing [None]
  - Product used for unknown indication [None]

NARRATIVE: CASE EVENT DATE: 20210806
